FAERS Safety Report 10281676 (Version 11)
Quarter: 2023Q1

REPORT INFORMATION
  Report Type: Spontaneous
  Country: US (occurrence: US)
  Receive Date: 20140707
  Receipt Date: 20230113
  Transmission Date: 20230418
  Serious: Yes (Other)
  Sender: FDA-Public Use
  Company Number: US-PFIZER INC-2014185852

PATIENT
  Age: 41 Year
  Sex: Female
  Weight: 53.07 kg

DRUGS (2)
  1. PRISTIQ EXTENDED-RELEASE [Suspect]
     Active Substance: DESVENLAFAXINE SUCCINATE
     Indication: Major depression
     Dosage: 100 MG, 1X/DAY
     Route: 048
     Dates: start: 2009, end: 2009
  2. PRISTIQ EXTENDED-RELEASE [Suspect]
     Active Substance: DESVENLAFAXINE SUCCINATE
     Dosage: UNK
     Dates: end: 202011

REACTIONS (13)
  - Cervical vertebral fracture [Unknown]
  - Shock [Unknown]
  - Mental impairment [Unknown]
  - Drug withdrawal syndrome [Unknown]
  - Feeling abnormal [Unknown]
  - Illness [Recovering/Resolving]
  - Amnesia [Unknown]
  - Bronchitis [Unknown]
  - Dysphonia [Unknown]
  - Malaise [Unknown]
  - Pyrexia [Unknown]
  - Suspected COVID-19 [Unknown]
  - Nervousness [Unknown]

NARRATIVE: CASE EVENT DATE: 20090101
